FAERS Safety Report 4883707-1 (Version None)
Quarter: 2006Q1

REPORT INFORMATION
  Report Type: 
  Country: None (occurrence: None)
  Receive Date: 20060113
  Receipt Date: 20051230
  Transmission Date: 20060701
  Serious: Yes (Other)
  Sender: FDA-Public Use
  Company Number: USA030948659

PATIENT
  Age: 62 Year
  Sex: Female
  Weight: 63.6 kg

DRUGS (7)
  1. FORTEO [Suspect]
     Indication: OSTEOPOROSIS
     Dosage: 20 UG, DAILY (1/D),
     Dates: start: 20030918
  2. ALLEGRA [Concomitant]
  3. VITAMINS [Concomitant]
  4. GLUCOSAMINE CHONDROITIN [Concomitant]
  5. NIACIN (NIACIN) [Concomitant]
  6. VITAMIN E [Concomitant]
  7. FORTEO PEN, 250MCG/ML (3ML) (FORTEO PEN 250MCG/ML (3ML)) PEN, DISPOSAB [Concomitant]

REACTIONS (6)
  - CYSTOCELE [None]
  - DYSURIA [None]
  - INJECTION SITE ERYTHEMA [None]
  - INJECTION SITE HAEMORRHAGE [None]
  - PHARMACEUTICAL PRODUCT COMPLAINT [None]
  - PRURITUS [None]
